FAERS Safety Report 9828278 (Version 1)
Quarter: 2013Q4

REPORT INFORMATION
  Report Type: Spontaneous
  Country: US (occurrence: None)
  Receive Date: 20131120
  Receipt Date: 20131120
  Transmission Date: 20140711
  Serious: No
  Sender: FDA-Public Use
  Company Number: 1000047588

PATIENT
  Age: 81 Year
  Sex: Female

DRUGS (2)
  1. VIIBRYD [Suspect]
     Indication: DEPRESSION
     Route: 048
     Dates: start: 20130730
  2. VALIUM (DIAZEPAM) (DIAZEPAM) [Concomitant]

REACTIONS (1)
  - Insomnia [None]
